FAERS Safety Report 7648713-2 (Version None)
Quarter: 2011Q3

REPORT INFORMATION
  Report Type: 
  Country: None (occurrence: None)
  Receive Date: 20110801
  Receipt Date: 20110725
  Transmission Date: 20111222
  Serious: Yes (Other)
  Sender: FDA-Public Use
  Company Number: PHHY2011TW66897

PATIENT
  Age: 70 Year
  Sex: Female

DRUGS (3)
  1. ZOLEDRONOC ACID [Suspect]
     Dosage: 5 MG/ 100 ML ONCE PER YEAR
     Route: 042
     Dates: start: 20110717
  2. ZOLEDRONOC ACID [Suspect]
     Indication: OSTEOPOROSIS POSTMENOPAUSAL
     Dosage: 5 MG/ 100 ML ONCE PER YEAR
     Route: 042
     Dates: start: 20090713
  3. ZOLEDRONOC ACID [Suspect]
     Dosage: 5 MG/100 ML ONCE PER YEAR
     Route: 042
     Dates: start: 20100716

REACTIONS (1)
  - NEPHROLITHIASIS [None]
